FAERS Safety Report 5479741-3 (Version None)
Quarter: 2007Q4

REPORT INFORMATION
  Report Type: 
  Country: None (occurrence: None)
  Receive Date: 20071003
  Receipt Date: 20070925
  Transmission Date: 20080405
  Serious: Yes (Other)
  Sender: FDA-Public Use
  Company Number: 2007331773

PATIENT
  Sex: Male

DRUGS (1)
  1. LISTERINE WHITENING PRE-BRUSH RINSE (NO ACTIVE INGREDIENT) [Suspect]
     Indication: DENTAL DISORDER PROPHYLAXIS
     Dosage: 2X A DAY, ORAL
     Route: 048
     Dates: start: 20070801, end: 20070920

REACTIONS (2)
  - BACTERIAL INFECTION [None]
  - ORAL MUCOSAL EXFOLIATION [None]
